FAERS Safety Report 9624003 (Version 1)
Quarter: 2013Q4

REPORT INFORMATION
  Report Type: Spontaneous
  Country: US (occurrence: US)
  Receive Date: 20131015
  Receipt Date: 20131015
  Transmission Date: 20140711
  Serious: No
  Sender: FDA-Public Use
  Company Number: US-BAUSCH-BL-2012-001289

PATIENT
  Age: 3 Year
  Sex: Male

DRUGS (1)
  1. NEOMYCIN AND POLYMYXIN B SULFATES AND HYDROCORTISONE OTIC SUSPENSION U [Suspect]
     Indication: EAR INFECTION
     Dosage: 1 TO 2 DROPS IN LEFT EAR; 3 TIMES DAILY
     Route: 001
     Dates: start: 20120509, end: 20120509

REACTIONS (2)
  - Headache [Unknown]
  - Hypersensitivity [Recovered/Resolved]
